FAERS Safety Report 16339713 (Version 2)
Quarter: 2019Q2

REPORT INFORMATION
  Report Type: Spontaneous
  Country: PL (occurrence: PL)
  Receive Date: 20190521
  Receipt Date: 20190523
  Transmission Date: 20190711
  Serious: Yes (Death, Hospitalization, Other)
  Sender: FDA-Public Use
  Company Number: PL-GILEAD-2019-0407678

PATIENT
  Age: 49 Year
  Sex: Male

DRUGS (2)
  1. FACTOR VIII [Concomitant]
     Active Substance: ANTIHEMOPHILIC FACTOR HUMAN
  2. EPCLUSA [Suspect]
     Active Substance: SOFOSBUVIR\VELPATASVIR
     Indication: CHRONIC HEPATITIS C
     Dosage: 1 DOSAGE FORM
     Route: 048
     Dates: start: 20180723, end: 20180802

REACTIONS (6)
  - Hepatic encephalopathy [Unknown]
  - Renal failure [Fatal]
  - Hyperkalaemia [Fatal]
  - Pyrexia [Unknown]
  - Ascites [Unknown]
  - Urinary tract infection [Unknown]

NARRATIVE: CASE EVENT DATE: 20180725
